FAERS Safety Report 10169456 (Version 1)
Quarter: 2014Q2

REPORT INFORMATION
  Report Type: Spontaneous
  Country: US (occurrence: US)
  Receive Date: 20140513
  Receipt Date: 20140513
  Transmission Date: 20141212
  Serious: No
  Sender: FDA-Public Use
  Company Number: US-PFIZER INC-2014129532

PATIENT
  Age: 71 Year
  Sex: Female
  Weight: 72.56 kg

DRUGS (11)
  1. LYRICA [Suspect]
     Dosage: 50 MG, 3X/DAY
     Route: 048
     Dates: start: 20140406, end: 20140507
  2. LYRICA [Suspect]
     Dosage: 100 MG, 3X/DAY
     Route: 048
     Dates: start: 20140508
  3. ALBUTEROL [Concomitant]
     Dosage: UNK
  4. CELEXA [Concomitant]
     Dosage: UNK
  5. FAMOTIDINE [Concomitant]
     Dosage: UNK
  6. FLONASE [Concomitant]
     Dosage: UNK
  7. OMEPRAZOLE [Concomitant]
     Dosage: UNK
  8. TRAZODONE [Concomitant]
     Dosage: UNK
  9. SYMBICORT [Concomitant]
     Dosage: UNK
  10. XOPENEX [Concomitant]
     Dosage: UNK
  11. HYDROCHLOROTHIAZIDE [Concomitant]
     Dosage: UNK

REACTIONS (2)
  - Myositis [Unknown]
  - Dysstasia [Unknown]
